FAERS Safety Report 6748401-0 (Version None)
Quarter: 2010Q2

REPORT INFORMATION
  Report Type: 
  Country: None (occurrence: None)
  Receive Date: 20100601
  Receipt Date: 20100517
  Transmission Date: 20101027
  Serious: Yes (Hospitalization, Other)
  Sender: FDA-Public Use
  Company Number: US-ASTRAZENECA-2006UW23551

PATIENT
  Age: 35 Year
  Sex: Female
  Weight: 62.1 kg

DRUGS (14)
  1. SEROQUEL [Suspect]
     Indication: INSOMNIA
     Dosage: 25 MG, 3 QHS
     Route: 048
     Dates: start: 20020128
  2. SEROQUEL [Suspect]
     Indication: DEPRESSION
     Dosage: 25 MG, 3 QHS
     Route: 048
     Dates: start: 20020128
  3. SEROQUEL [Suspect]
     Route: 048
     Dates: start: 20020228
  4. SEROQUEL [Suspect]
     Route: 048
     Dates: start: 20020228
  5. SEROQUEL [Suspect]
     Route: 048
     Dates: start: 20081101
  6. SEROQUEL [Suspect]
     Route: 048
     Dates: start: 20081101
  7. SEROQUEL [Suspect]
     Route: 048
     Dates: start: 20081101
  8. SEROQUEL [Suspect]
     Route: 048
     Dates: start: 20081101
  9. PROZAC [Concomitant]
  10. PAXIL [Concomitant]
  11. TEGRETOL [Concomitant]
  12. PENTASA SA [Concomitant]
     Dosage: 250 MG 4 CAPSULE 4 TIMES A DAY
     Route: 048
     Dates: start: 20020115
  13. TRILEPTAL [Concomitant]
     Indication: DEPRESSION
     Route: 048
     Dates: start: 20020128
  14. WELLBUTRIN SR [Concomitant]
     Indication: DEPRESSION
     Route: 048
     Dates: start: 20020128

REACTIONS (6)
  - DIABETES MELLITUS [None]
  - DIABETES MELLITUS INADEQUATE CONTROL [None]
  - DIABETIC KETOACIDOSIS [None]
  - DIABETIC NEUROPATHY [None]
  - PANCREATITIS [None]
  - PANCREATITIS ACUTE [None]
